FAERS Safety Report 20162837 (Version 1)
Quarter: 2021Q4

REPORT INFORMATION
  Report Type: Spontaneous
  Country: ZA (occurrence: ZA)
  Receive Date: 20211209
  Receipt Date: 20211209
  Transmission Date: 20220303
  Serious: No
  Sender: FDA-Public Use
  Company Number: ZA-LUPIN PHARMACEUTICALS INC.-2021-23554

PATIENT
  Age: 51 Year
  Sex: Female

DRUGS (7)
  1. CEFTRIAXONE [Suspect]
     Active Substance: CEFTRIAXONE
     Indication: COVID-19 pneumonia
     Dosage: 1 MILLIGRAM, A STAT DOSE OF CEFTRIAXONE 1 MG
     Route: 065
     Dates: start: 202101, end: 202101
  2. UNSPECIFIED INGREDIENT [Suspect]
     Active Substance: UNSPECIFIED INGREDIENT
     Indication: COVID-19 pneumonia
     Dosage: 40 MG
     Route: 065
  3. DEXAMETHASONE [Suspect]
     Active Substance: DEXAMETHASONE
     Indication: COVID-19 pneumonia
     Dosage: 6 MILLIGRAM
     Route: 065
     Dates: start: 202101
  4. FLUCONAZOLE [Concomitant]
     Active Substance: FLUCONAZOLE
     Indication: Cryptococcosis
     Dosage: FLUCONAZOLE PROTOCOL INITIATED
     Route: 065
     Dates: start: 202102
  5. SODIUM CHLORIDE [Concomitant]
     Active Substance: SODIUM CHLORIDE
     Indication: Dehydration
     Dosage: UNK
     Route: 065
     Dates: start: 202101
  6. NYSTATIN [Concomitant]
     Active Substance: NYSTATIN
     Indication: Oropharyngeal candidiasis
     Dosage: UNK
     Route: 065
     Dates: start: 202101
  7. COTRIMOXAZOLE [Concomitant]
     Active Substance: SULFAMETHOXAZOLE\TRIMETHOPRIM
     Indication: Antibiotic prophylaxis
     Dosage: UNK
     Route: 065
     Dates: start: 2021

REACTIONS (1)
  - Off label use [Unknown]

NARRATIVE: CASE EVENT DATE: 20210101
